FAERS Safety Report 9271312 (Version 3)
Quarter: 2013Q2

REPORT INFORMATION
  Report Type: Spontaneous
  Country: US (occurrence: US)
  Receive Date: 20130506
  Receipt Date: 20130628
  Transmission Date: 20140414
  Serious: Yes (Hospitalization)
  Sender: FDA-Public Use
  Company Number: US-JNJFOC-20130417567

PATIENT
  Age: 76 Year
  Sex: Male
  Weight: 66 kg

DRUGS (14)
  1. XARELTO [Suspect]
     Indication: CEREBROVASCULAR ACCIDENT PROPHYLAXIS
     Route: 048
     Dates: end: 20130426
  2. XARELTO [Suspect]
     Indication: ATRIAL FIBRILLATION
     Route: 048
     Dates: end: 20130426
  3. VITAMIN B12 [Concomitant]
     Route: 048
  4. AMITRIPTYLINE [Concomitant]
     Dosage: AT BED TIME
     Route: 048
  5. CITALOPRAM [Concomitant]
     Route: 048
  6. ADVAIR 250/50 [Concomitant]
     Dosage: 1 PUFF
     Route: 065
  7. JANUVIA [Concomitant]
     Route: 048
  8. CARAFATE [Concomitant]
     Route: 065
  9. FLOMAX [Concomitant]
     Route: 048
  10. SPIRIVA [Concomitant]
     Route: 065
  11. RANITIDINE [Concomitant]
     Route: 048
  12. SEROQUEL [Concomitant]
     Dosage: BED TIME
     Route: 048
  13. PRILOSEC [Concomitant]
     Route: 048
  14. METOPROLOL [Concomitant]
     Route: 048

REACTIONS (2)
  - Pulmonary haemorrhage [Recovered/Resolved]
  - Respiratory failure [Recovered/Resolved]
